FAERS Safety Report 9418750 (Version 2)
Quarter: 2013Q4

REPORT INFORMATION
  Report Type: Spontaneous
  Country: US (occurrence: US)
  Receive Date: 20130725
  Receipt Date: 20131115
  Transmission Date: 20140711
  Serious: Yes (Hospitalization, Other)
  Sender: FDA-Public Use
  Company Number: US-PFIZER INC-2013214942

PATIENT
  Age: 57 Year
  Sex: Male
  Weight: 126.98 kg

DRUGS (5)
  1. LYRICA [Suspect]
     Indication: HYPERTENSION
     Dosage: 100 MG, 2X/DAY
     Route: 048
     Dates: start: 201306, end: 201307
  2. LYRICA [Suspect]
     Indication: HAEMORRHAGE
  3. SIMVASTATIN [Concomitant]
     Indication: BLOOD TRIGLYCERIDES INCREASED
     Dosage: 20 MG, UNK
  4. ZESTRIL [Concomitant]
     Indication: HYPERTENSION
     Dosage: 20 MG, 2X/DAY
  5. HYDROCODONE [Concomitant]
     Dosage: 12.5 MG, 1X/DAY

REACTIONS (5)
  - Off label use [Unknown]
  - Cerebrovascular accident [Unknown]
  - Weight decreased [Unknown]
  - Paraesthesia [Unknown]
  - General physical health deterioration [Unknown]
